FAERS Safety Report 17836067 (Version 2)
Quarter: 2020Q2

REPORT INFORMATION
  Report Type: Spontaneous
  Country: CA (occurrence: CA)
  Receive Date: 20200528
  Receipt Date: 20200529
  Transmission Date: 20200714
  Serious: Yes (Other)
  Sender: FDA-Public Use
  Company Number: CA-HRARD-202000409

PATIENT
  Age: 48 Year
  Sex: Female

DRUGS (4)
  1. MITOTANE [Suspect]
     Active Substance: MITOTANE
     Indication: PRODUCT USED FOR UNKNOWN INDICATION
     Route: 065
  2. DOXORUBICIN [Suspect]
     Active Substance: DOXORUBICIN
     Route: 065
  3. CISPLATIN. [Suspect]
     Active Substance: CISPLATIN
     Route: 065
  4. ETOPOSIDE. [Suspect]
     Active Substance: ETOPOSIDE
     Route: 065

REACTIONS (4)
  - Malignant neoplasm progression [Unknown]
  - Hepatic cancer metastatic [Unknown]
  - Pulmonary mass [Unknown]
  - Hepatic enzyme increased [Recovering/Resolving]
